FAERS Safety Report 20607750 (Version 3)
Quarter: 2024Q4

REPORT INFORMATION
  Report Type: Report from Study
  Country: BE (occurrence: BE)
  Receive Date: 20220317
  Receipt Date: 20241204
  Transmission Date: 20250114
  Serious: No
  Sender: ROCHE
  Company Number: BE-ROCHE-3052027

PATIENT
  Age: 29 Year
  Sex: Male
  Weight: 72.0 kg

DRUGS (11)
  1. OCRELIZUMAB [Suspect]
     Active Substance: OCRELIZUMAB
     Indication: Relapsing-remitting multiple sclerosis
     Dosage: SUBSEQUENT DOSE ON 18-SEP-2020
     Route: 042
     Dates: start: 20200904
  2. OCRELIZUMAB [Suspect]
     Active Substance: OCRELIZUMAB
     Route: 042
     Dates: start: 20210909, end: 20210909
  3. OCRELIZUMAB [Suspect]
     Active Substance: OCRELIZUMAB
     Route: 042
     Dates: start: 20220310, end: 20220310
  4. OCRELIZUMAB [Suspect]
     Active Substance: OCRELIZUMAB
     Route: 042
     Dates: start: 20240226, end: 20240226
  5. OCRELIZUMAB [Suspect]
     Active Substance: OCRELIZUMAB
     Route: 042
     Dates: start: 20240830, end: 20240830
  6. OCRELIZUMAB [Suspect]
     Active Substance: OCRELIZUMAB
     Route: 042
     Dates: start: 20220908, end: 20220908
  7. OCRELIZUMAB [Suspect]
     Active Substance: OCRELIZUMAB
     Route: 042
     Dates: start: 20230309, end: 20230309
  8. OCRELIZUMAB [Suspect]
     Active Substance: OCRELIZUMAB
     Route: 042
     Dates: start: 20210311, end: 20210311
  9. OCRELIZUMAB [Suspect]
     Active Substance: OCRELIZUMAB
     Route: 042
     Dates: start: 20230825, end: 20230825
  10. CHOLECALCIFEROL [Concomitant]
     Active Substance: CHOLECALCIFEROL
     Dosage: 1 AMPULE? FREQUENCY TEXT:PRN
     Route: 048
     Dates: start: 20200330
  11. SOLIFENACIN [Concomitant]
     Active Substance: SOLIFENACIN
     Indication: COVID-19
     Route: 048
     Dates: start: 20210301

REACTIONS (1)
  - Coronavirus infection [Recovered/Resolved]

NARRATIVE: CASE EVENT DATE: 20220212
